FAERS Safety Report 6618780-3 (Version None)
Quarter: 2010Q1

REPORT INFORMATION
  Report Type: 
  Country: None (occurrence: None)
  Receive Date: 20100302
  Receipt Date: 20100301
  Transmission Date: 20100710
  Serious: Yes (Life-Threatening, Hospitalization, Disabling)
  Sender: FDA-Public Use
  Company Number: THQ2009A04806

PATIENT
  Age: 80 Year
  Sex: Male

DRUGS (2)
  1. LANSOPRAZOLE [Suspect]
     Dates: start: 20060725
  2. ACIPHEX [Suspect]

REACTIONS (4)
  - HYPOCALCAEMIA [None]
  - HYPOMAGNESAEMIA [None]
  - HYPOPARATHYROIDISM SECONDARY [None]
  - TETANY [None]
